FAERS Safety Report 9398731 (Version 1)
Quarter: 2013Q3

REPORT INFORMATION
  Report Type: Spontaneous
  Country: CN (occurrence: CN)
  Receive Date: 20130712
  Receipt Date: 20130712
  Transmission Date: 20140515
  Serious: Yes (Other)
  Sender: FDA-Public Use
  Company Number: CN-BAXTER-2013BAX026592

PATIENT
  Age: 48 Year
  Sex: Male
  Weight: 55 kg

DRUGS (2)
  1. 5% GLUCOSE INJECTION [Suspect]
     Indication: FLUID REPLACEMENT
     Route: 042
     Dates: start: 20120412, end: 20120412
  2. 0.9% SODIUM CHLORIDE INJECTION [Suspect]
     Indication: FLUID REPLACEMENT
     Route: 042
     Dates: start: 20120412, end: 20120412

REACTIONS (2)
  - Rash [Recovered/Resolved]
  - Dyspnoea [Unknown]
